FAERS Safety Report 5370402-8 (Version None)
Quarter: 2007Q2

REPORT INFORMATION
  Report Type: 
  Country: None (occurrence: None)
  Receive Date: 20070626
  Receipt Date: 20070208
  Transmission Date: 20071010
  Serious: No
  Sender: FDA-Public Use
  Company Number: US-AMGEN-KDL212202

PATIENT
  Sex: Female

DRUGS (2)
  1. PROCRIT [Suspect]
     Indication: ANAEMIA
     Route: 058
     Dates: start: 20070101
  2. ARANESP [Suspect]

REACTIONS (3)
  - DIARRHOEA [None]
  - NAUSEA [None]
  - URINARY RETENTION [None]
